FAERS Safety Report 9868341 (Version 3)
Quarter: 2014Q3

REPORT INFORMATION
  Report Type: Spontaneous
  Country: US (occurrence: US)
  Receive Date: 20140204
  Receipt Date: 20140710
  Transmission Date: 20150326
  Serious: Yes (Hospitalization, Disabling, Other)
  Sender: FDA-Public Use
  Company Number: US-009507513-1402USA001293

PATIENT
  Sex: Female

DRUGS (1)
  1. NUVARING [Suspect]
     Active Substance: ETHINYL ESTRADIOL\ETONOGESTREL
     Indication: CONTRACEPTION
     Dosage: UNK
     Route: 067
     Dates: start: 2010, end: 20110209

REACTIONS (6)
  - Pulmonary embolism [Recovered/Resolved]
  - Pulmonary embolism [Not Recovered/Not Resolved]
  - Migraine [Unknown]
  - Anticoagulation drug level below therapeutic [Unknown]
  - Embolism venous [Unknown]
  - Cervical dysplasia [Unknown]

NARRATIVE: CASE EVENT DATE: 201004
